FAERS Safety Report 6959533-6 (Version None)
Quarter: 2010Q3

REPORT INFORMATION
  Report Type: 
  Country: None (occurrence: None)
  Receive Date: 20100827
  Receipt Date: 20100816
  Transmission Date: 20110219
  Serious: Yes (Other)
  Sender: FDA-Public Use
  Company Number: 017229

PATIENT
  Sex: Female

DRUGS (5)
  1. LORTAB [Suspect]
  2. CODEINE [Suspect]
  3. DEXLANSOPRAZOLE [Suspect]
  4. LEVBID (NOT SPECIFIED) [Suspect]
  5. CELEBREX [Suspect]
     Indication: ARTHRITIS

REACTIONS (9)
  - BLINDNESS [None]
  - BLOOD PRESSURE INCREASED [None]
  - DIVERTICULITIS [None]
  - DRUG HYPERSENSITIVITY [None]
  - DYSPEPSIA [None]
  - MUSCLE SPASMS [None]
  - OVARIAN CYST [None]
  - PAIN [None]
  - SOMNOLENCE [None]
